FAERS Safety Report 8154197-0 (Version None)
Quarter: 2012Q1

REPORT INFORMATION
  Report Type: 
  Country: None (occurrence: None)
  Receive Date: 20120217
  Receipt Date: 20120217
  Transmission Date: 20120608
  Serious: No
  Sender: FDA-Public Use
  Company Number: None

PATIENT
  Sex: Female
  Weight: 83.9 kg

DRUGS (1)
  1. VENLAFAXINE [Suspect]
     Indication: BREAST CANCER
     Dosage: 75MG DAILY PO
     Route: 048

REACTIONS (1)
  - DRUG INEFFECTIVE [None]
